FAERS Safety Report 19856767 (Version 7)
Quarter: 2022Q1

REPORT INFORMATION
  Report Type: Report from Study
  Country: CN (occurrence: CN)
  Receive Date: 20210920
  Receipt Date: 20220301
  Transmission Date: 20220423
  Serious: Yes (Hospitalization)
  Sender: FDA-Public Use
  Company Number: CN-DSJP-DSE-2021-130680

PATIENT
  Age: 84 Year
  Sex: Male
  Weight: 70 kg

DRUGS (12)
  1. EDOXABAN [Suspect]
     Active Substance: EDOXABAN
     Indication: Atrial fibrillation
     Dosage: 30 MG, QD
     Route: 048
     Dates: start: 20210625, end: 20210828
  2. EDOXABAN [Suspect]
     Active Substance: EDOXABAN
     Dosage: 30 MG, QD
     Route: 048
     Dates: start: 20210903
  3. FUROSEMIDE [Concomitant]
     Active Substance: FUROSEMIDE
     Indication: Cardiac failure
     Dosage: 20 MG, QD
     Route: 048
     Dates: start: 20210302
  4. ROSUVASTATIN CALCIUM [Concomitant]
     Active Substance: ROSUVASTATIN CALCIUM
     Indication: Cerebral infarction
     Dosage: 10 MG, QD
     Route: 048
     Dates: start: 20210302
  5. BISOPROLOL FUMARATE [Concomitant]
     Active Substance: BISOPROLOL FUMARATE
     Indication: Hypertension
     Dosage: 5 MG, QD
     Route: 048
     Dates: start: 20210302
  6. TRADITIONAL CHINESE MEDICINE (TCM) DECOCTION [Concomitant]
     Indication: Cerebral infarction
     Dosage: 0.84 G, TID
     Route: 048
     Dates: start: 20210525
  7. CITICOLINE;SODIUM CHLORIDE [Concomitant]
     Indication: Cerebral infarction
     Dosage: 0.2 G, TID
     Route: 048
     Dates: start: 20210302
  8. FINASTERIDE [Concomitant]
     Active Substance: FINASTERIDE
     Indication: Benign prostatic hyperplasia
     Dosage: 5 MG, QD
     Route: 048
     Dates: start: 20210302
  9. ACTIVATED CHARCOAL [Concomitant]
     Active Substance: ACTIVATED CHARCOAL
     Indication: Renal failure
     Dosage: 0.9 G, TID
     Route: 048
     Dates: start: 20210302
  10. TRADITIONAL CHINESE MEDICINE (TCM) DECOCTION [Concomitant]
     Indication: Renal failure
     Dosage: 5 G, TID
     Route: 048
     Dates: start: 20210625
  11. ILAPRAZOLE [Concomitant]
     Active Substance: ILAPRAZOLE
     Indication: Chronic gastritis
     Dosage: 5 MG, QD
     Route: 048
     Dates: start: 20210625
  12. DOMPERIDONE [Concomitant]
     Active Substance: DOMPERIDONE
     Indication: Chronic gastritis
     Dosage: 10 MG, TID
     Route: 048
     Dates: start: 20210625

REACTIONS (16)
  - Haemorrhoids [Recovered/Resolved with Sequelae]
  - Cardiac failure [Recovering/Resolving]
  - Chronic obstructive pulmonary disease [Recovering/Resolving]
  - Altered state of consciousness [Recovered/Resolved]
  - Pneumonia [Recovered/Resolved]
  - Tricuspid valve incompetence [Not Recovered/Not Resolved]
  - Pulmonary hypertension [Not Recovered/Not Resolved]
  - Arterial stenosis [Not Recovered/Not Resolved]
  - Arteriosclerosis [Not Recovered/Not Resolved]
  - Hyponatraemia [Unknown]
  - Pneumonia [Unknown]
  - Hepatic cyst [Unknown]
  - Respiratory failure [Unknown]
  - Hypoxic-ischaemic encephalopathy [Unknown]
  - Respiratory acidosis [Unknown]
  - Cholelithiasis [Unknown]

NARRATIVE: CASE EVENT DATE: 20210829
